FAERS Safety Report 11114088 (Version 1)
Quarter: 2015Q2

REPORT INFORMATION
  Report Type: Report from Study
  Country: US (occurrence: US)
  Receive Date: 20150514
  Receipt Date: 20150514
  Transmission Date: 20150821
  Serious: Yes (Hospitalization)
  Sender: FDA-Public Use
  Company Number: US-EISAI MEDICAL RESEARCH-EC-2015-006768

PATIENT
  Age: 45 Year
  Sex: Female
  Weight: 64 kg

DRUGS (2)
  1. EVEROLIMUS [Suspect]
     Active Substance: EVEROLIMUS
     Indication: BREAST CANCER METASTATIC
     Route: 048
     Dates: start: 20150407, end: 20150417
  2. ERIBULIN [Suspect]
     Active Substance: ERIBULIN
     Indication: BREAST CANCER METASTATIC
     Route: 041
     Dates: start: 20150407

REACTIONS (1)
  - Mucosal inflammation [Unknown]

NARRATIVE: CASE EVENT DATE: 20150512
